FAERS Safety Report 18603442 (Version 2)
Quarter: 2020Q4

REPORT INFORMATION
  Report Type: Report from Study
  Country: None (occurrence: US)
  Receive Date: 20201210
  Receipt Date: 20201230
  Transmission Date: 20210114
  Serious: Yes (Hospitalization)
  Sender: FDA-Public Use
  Company Number: US-ABBVIE-20K-163-3680620-00

PATIENT
  Sex: Female
  Weight: 113.5 kg

DRUGS (1)
  1. SKYRIZI [Suspect]
     Active Substance: RISANKIZUMAB-RZAA
     Indication: PSORIASIS
     Route: 058
     Dates: start: 20200831

REACTIONS (4)
  - Discomfort [Unknown]
  - Tachycardia [Unknown]
  - Myocardial infarction [Unknown]
  - Eructation [Unknown]

NARRATIVE: CASE EVENT DATE: 2020
